FAERS Safety Report 4870138-3 (Version None)
Quarter: 2005Q4

REPORT INFORMATION
  Report Type: 
  Country: None (occurrence: None)
  Receive Date: 20051228
  Receipt Date: 20051220
  Transmission Date: 20060501
  Serious: Yes (Hospitalization)
  Sender: FDA-Public Use
  Company Number: J081-002-002113

PATIENT
  Age: 86 Year
  Sex: Female
  Weight: 37.4 kg

DRUGS (13)
  1. ARICEPT [Suspect]
     Indication: DEMENTIA ALZHEIMER'S TYPE
     Dosage: 3 MG, 1 IN 1 D, ORAL; 1 IN D, ORAL
     Route: 048
     Dates: start: 20000708, end: 20000714
  2. ARICEPT [Suspect]
     Indication: DEMENTIA ALZHEIMER'S TYPE
     Dosage: 3 MG, 1 IN 1 D, ORAL; 1 IN D, ORAL
     Route: 048
     Dates: start: 20000715, end: 20040921
  3. ARICEPT [Suspect]
     Indication: DEMENTIA ALZHEIMER'S TYPE
     Dosage: 5 MG, 1 IN 1 D, ORAL
     Route: 048
     Dates: start: 20040922, end: 20051104
  4. SEROQUEL [Suspect]
     Indication: PSYCHIATRIC SYMPTOM
     Dosage: 12.5 MG, 1 IN 1 D, ORAL; 25 MG, 1 IN 1 D, ORAL
     Route: 048
     Dates: start: 20040810, end: 20041214
  5. SEROQUEL [Suspect]
     Indication: PSYCHIATRIC SYMPTOM
     Dosage: 12.5 MG, 1 IN 1 D, ORAL; 25 MG, 1 IN 1 D, ORAL
     Route: 048
     Dates: start: 20041215
  6. SELBEX (TEPRENONE) [Suspect]
     Indication: PROPHYLAXIS AGAINST GASTROINTESTINAL ULCER
     Dosage: 150 MG, 3 IN 1 D, ORAL
     Route: 048
     Dates: start: 20000707, end: 20051104
  7. BLOSTAR M (FAMOTIDINE) [Concomitant]
  8. MAGNESIUM OXIDE (MAGNESIUM OXIDE) [Concomitant]
  9. CALFINA (ALFACALCIDOL) [Concomitant]
  10. CELTECT (OXATOMIDE) [Concomitant]
  11. BANAN [Concomitant]
  12. ZOPICOOL (ZOPICLONE) [Concomitant]
  13. OZEX (TOSUFLOXACIN TOSILATE) [Concomitant]

REACTIONS (3)
  - FEELING HOT [None]
  - HAEMORRHAGE [None]
  - PEMPHIGOID [None]
